FAERS Safety Report 6561063-0 (Version None)
Quarter: 2010Q1

REPORT INFORMATION
  Report Type: 
  Country: None (occurrence: None)
  Receive Date: 20100130
  Receipt Date: 20091006
  Transmission Date: 20100710
  Serious: No
  Sender: FDA-Public Use
  Company Number: US-ABBOTT-09P-163-0601488-00

PATIENT
  Sex: Male
  Weight: 81.72 kg

DRUGS (5)
  1. HUMIRA [Suspect]
     Indication: CROHN'S DISEASE
     Route: 058
     Dates: start: 20090813, end: 20090813
  2. HUMIRA [Suspect]
     Route: 058
     Dates: start: 20090827, end: 20090827
  3. HUMIRA [Suspect]
     Route: 058
     Dates: start: 20090903
  4. PENTASA [Concomitant]
     Indication: CROHN'S DISEASE
     Route: 048
  5. PREDNISONE [Concomitant]
     Indication: CROHN'S DISEASE
     Route: 048

REACTIONS (1)
  - RASH [None]
